FAERS Safety Report 9437243 (Version 3)
Quarter: 2013Q3

REPORT INFORMATION
  Report Type: Report from Study
  Country: LB (occurrence: LB)
  Receive Date: 20130802
  Receipt Date: 20130829
  Transmission Date: 20140515
  Serious: Yes (Death, Hospitalization, Other)
  Sender: FDA-Public Use
  Company Number: PHHY2012LB068528

PATIENT
  Age: 84 Year
  Sex: Male

DRUGS (2)
  1. GLIVEC [Suspect]
     Indication: CHRONIC MYELOID LEUKAEMIA
     Dosage: 400 MG, QD
     Route: 048
     Dates: start: 2006, end: 201307
  2. ASPIRINE [Concomitant]
     Dosage: 1 DF, UNK
     Route: 048
     Dates: start: 201207

REACTIONS (13)
  - Death [Fatal]
  - Anaemia [Recovering/Resolving]
  - Terminal state [Unknown]
  - Squamous cell carcinoma of skin [Unknown]
  - Metastases to lymph nodes [Unknown]
  - Second primary malignancy [Unknown]
  - Furuncle [Not Recovered/Not Resolved]
  - Recurring skin boils [Not Recovered/Not Resolved]
  - Piloerection [Not Recovered/Not Resolved]
  - Decreased appetite [Unknown]
  - Lymphadenopathy [Unknown]
  - Asthenia [Unknown]
  - Exercise lack of [Not Recovered/Not Resolved]
